FAERS Safety Report 6421897-X (Version None)
Quarter: 2009Q4

REPORT INFORMATION
  Report Type: 
  Country: None (occurrence: None)
  Receive Date: 20091029
  Receipt Date: 20091029
  Transmission Date: 20100525
  Serious: No
  Sender: FDA-Public Use
  Company Number: None

PATIENT
  Sex: Female
  Weight: 45.3597 kg

DRUGS (2)
  1. TRI-SPRINTEC [Suspect]
     Indication: AMENORRHOEA
     Dosage: 1 QD
  2. APRI [Suspect]
     Indication: AMENORRHOEA
     Dosage: 1 QD

REACTIONS (1)
  - ACNE [None]
